FAERS Safety Report 4963624-9 (Version None)
Quarter: 2006Q1

REPORT INFORMATION
  Report Type: 
  Country: None (occurrence: None)
  Receive Date: 20060330
  Receipt Date: 20060317
  Transmission Date: 20060701
  Serious: Yes (Life-Threatening, Hospitalization)
  Sender: FDA-Public Use
  Company Number: 2006038503

PATIENT
  Age: 39 Year
  Sex: Male
  Weight: 57.5 kg

DRUGS (5)
  1. SUTENT [Suspect]
     Indication: METASTATIC RENAL CELL CARCINOMA
     Dosage: 50 MG (50 MG, 1 IN 1 D), ORAL
     Route: 048
     Dates: start: 20060301
  2. FENTANYL [Concomitant]
  3. ETORICOXIB (ETORICOXIB) [Concomitant]
  4. GABAPENTIN [Concomitant]
  5. CODEINE/PHENYLTOLOXAMINE (CODEINE, PHENYLTOLOXAMINE) [Concomitant]

REACTIONS (7)
  - BRAIN HERNIATION [None]
  - COORDINATION ABNORMAL [None]
  - HAEMORRHAGE INTRACRANIAL [None]
  - HYPOAESTHESIA [None]
  - INTRAVENTRICULAR HAEMORRHAGE [None]
  - SOMNOLENCE [None]
  - VOMITING [None]
